FAERS Safety Report 10128662 (Version 3)
Quarter: 2014Q2

REPORT INFORMATION
  Report Type: Report from Study
  Country: US (occurrence: US)
  Receive Date: 20140428
  Receipt Date: 20140529
  Transmission Date: 20141212
  Serious: Yes (Hospitalization)
  Sender: FDA-Public Use
  Company Number: US-JNJFOC-20140416860

PATIENT
  Age: 15 Year
  Sex: Male
  Weight: 44.4 kg

DRUGS (10)
  1. REMICADE [Suspect]
     Indication: CROHN^S DISEASE
     Route: 042
     Dates: start: 20131226
  2. 5-ASA [Concomitant]
     Indication: CROHN^S DISEASE
     Route: 048
  3. 6-MERCAPTOPURINE [Concomitant]
     Indication: CROHN^S DISEASE
     Route: 065
  4. BUDESONIDE [Concomitant]
     Indication: CROHN^S DISEASE
     Route: 065
  5. ZYPREXA [Concomitant]
     Route: 065
  6. DIPHENHYDRAMINE [Concomitant]
     Route: 065
  7. HALDOL [Concomitant]
     Route: 065
  8. ATIVAN [Concomitant]
     Route: 065
  9. MELATONIN [Concomitant]
     Route: 065
  10. ZOFRAN [Concomitant]
     Route: 065

REACTIONS (2)
  - Crohn^s disease [Recovered/Resolved]
  - Cellulitis [Recovered/Resolved]
